FAERS Safety Report 9055843 (Version 1)
Quarter: 2013Q1

REPORT INFORMATION
  Report Type: Spontaneous
  Country: GB (occurrence: GB)
  Receive Date: 20130206
  Receipt Date: 20130206
  Transmission Date: 20140127
  Serious: Yes (Hospitalization, Other)
  Sender: FDA-Public Use
  Company Number: GB-B.I. PHARMACEUTICALS,INC./RIDGEFIELD-2013-UK-00150UK

PATIENT
  Age: 89 Year
  Sex: Female

DRUGS (7)
  1. PRADAXA [Suspect]
     Indication: ATRIAL FIBRILLATION
     Route: 048
     Dates: start: 20121116
  2. PRADAXA [Suspect]
     Dosage: 220 MG
     Dates: end: 20121126
  3. ADCAL-D3 [Concomitant]
     Route: 048
     Dates: start: 200512
  4. BENDROFLUMETHIAZIDE [Concomitant]
     Indication: HYPERTENSION
     Dosage: 2.5 MG
     Route: 048
     Dates: start: 199902
  5. CO-CODAMOL [Concomitant]
     Indication: ARTHRITIS
     Route: 048
     Dates: start: 200001
  6. FUROSEMIDE [Concomitant]
     Indication: OEDEMA
     Dosage: 40 MG
     Route: 048
     Dates: start: 20120702
  7. WARFARIN [Concomitant]
     Indication: ATRIAL FIBRILLATION
     Route: 048
     Dates: start: 20121112

REACTIONS (2)
  - Gastrointestinal haemorrhage [Recovered/Resolved]
  - Dizziness [Recovered/Resolved]
